FAERS Safety Report 10287447 (Version 1)
Quarter: 2014Q3

REPORT INFORMATION
  Report Type: Report from Study
  Country: AU (occurrence: AU)
  Receive Date: 20140709
  Receipt Date: 20140709
  Transmission Date: 20150326
  Serious: Yes (Hospitalization, Other)
  Sender: FDA-Public Use
  Company Number: PHHY2014AU083310

PATIENT
  Age: 26 Year
  Sex: Male

DRUGS (10)
  1. ASPIRIN. [Concomitant]
     Active Substance: ASPIRIN
     Dosage: 100 MG, QD
  2. ATORVASTAN [Concomitant]
     Dosage: UNK UKN, UNK
  3. CHLORPROMAZINE [Concomitant]
     Active Substance: CHLORPROMAZINE
     Dosage: 200 MG, QD
  4. CLONAZEPAM. [Concomitant]
     Active Substance: CLONAZEPAM
     Dosage: 0.25 MG, AT MORNING AND 0.5 MG AT NIGHT
  5. FELODIPINE. [Concomitant]
     Active Substance: FELODIPINE
     Dosage: UNK UKN, UNK
  6. CLOZARIL [Suspect]
     Active Substance: CLOZAPINE
     Indication: SCHIZOPHRENIA
     Dosage: UNK UKN, UNK
     Route: 048
     Dates: start: 19940418
  7. SODIUM VALPROATE [Concomitant]
     Active Substance: VALPROATE SODIUM
     Dosage: 1.3 G, BID
  8. PHENYTOIN. [Concomitant]
     Active Substance: PHENYTOIN
     Dosage: 2300 MG, BID
  9. OLANZAPIN [Concomitant]
     Active Substance: OLANZAPINE
     Dosage: 10 MG, TID
  10. RANITIDIN [Concomitant]
     Active Substance: RANITIDINE HYDROCHLORIDE
     Dosage: UNK UKN, UNK

REACTIONS (6)
  - Blood test abnormal [Unknown]
  - Respiratory tract infection [Unknown]
  - Neutrophil count decreased [Unknown]
  - Aneurysm [Unknown]
  - White blood cell count decreased [Unknown]
  - Psychotic disorder [Unknown]

NARRATIVE: CASE EVENT DATE: 19940628
